FAERS Safety Report 9249831 (Version 7)
Quarter: 2013Q3

REPORT INFORMATION
  Report Type: Report from Study
  Country: DE (occurrence: DE)
  Receive Date: 20130423
  Receipt Date: 20130930
  Transmission Date: 20140515
  Serious: Yes (Hospitalization, Other)
  Sender: FDA-Public Use
  Company Number: PHHY2013DE031234

PATIENT
  Sex: Female
  Weight: 99.2 kg

DRUGS (12)
  1. AFINITOR [Suspect]
     Indication: BREAST CANCER METASTATIC
     Dosage: 10 MG, QD
     Route: 048
     Dates: start: 20121114, end: 20130328
  2. EXEMESTANE [Concomitant]
     Indication: BREAST CANCER METASTATIC
     Dosage: 25 MG, QD
     Route: 048
     Dates: start: 20121114, end: 20130328
  3. EXEMESTANE [Concomitant]
     Dosage: 25 MG, QD
     Route: 048
     Dates: start: 20130404, end: 20130506
  4. PAMIDRON [Concomitant]
     Dosage: 90 MG EVERY 4 WEEKS
     Dates: start: 20080220
  5. CITALOPRAM [Concomitant]
     Dosage: 40 MG, QD
     Dates: start: 19920101
  6. METFORMIN [Concomitant]
     Dosage: 1000 MG, BID
     Dates: start: 20080101
  7. SIMVABETA [Concomitant]
     Dosage: 0.5 DF, DAILY
     Dates: start: 20080101
  8. LAMOTRIGINE [Concomitant]
     Dosage: 25 MG, BID
     Dates: start: 19920101
  9. NAPROXEN [Concomitant]
     Dosage: 500 MG, TID
     Dates: start: 20080101
  10. AMLODIPINE [Concomitant]
     Dosage: 5 MG, QD
  11. LIPROLOG [Concomitant]
     Indication: DIABETES MELLITUS
     Dosage: 24 U
  12. BERLININSULIN H BASAL [Concomitant]
     Indication: DIABETES MELLITUS
     Dosage: 40 U

REACTIONS (12)
  - General physical health deterioration [Recovering/Resolving]
  - Tachypnoea [Recovering/Resolving]
  - Sputum discoloured [Unknown]
  - Chills [Unknown]
  - Alveolitis [Recovered/Resolved]
  - Dyspnoea [Recovering/Resolving]
  - Bronchopneumonia [Recovered/Resolved]
  - Cough [Unknown]
  - Pneumonitis [Unknown]
  - Diabetes mellitus [Unknown]
  - Haemoglobin decreased [Unknown]
  - Blood pressure increased [Recovered/Resolved]
